FAERS Safety Report 14781965 (Version 1)
Quarter: 2018Q2

REPORT INFORMATION
  Report Type: Spontaneous
  Country: US (occurrence: US)
  Receive Date: 20180420
  Receipt Date: 20180420
  Transmission Date: 20180711
  Serious: No
  Sender: FDA-Public Use
  Company Number: US-TEVA-758621ACC

PATIENT
  Sex: Male

DRUGS (1)
  1. WARFARIN [Suspect]
     Active Substance: WARFARIN
     Indication: ANTICOAGULANT THERAPY
     Dosage: FULL TABLET ON MONDAYS AND FRIDAYS, AND A HALF TABLET ON TUESDAY, WEDNESDAY, THURSDAY, SATURDAY, AND

REACTIONS (1)
  - Blood cholesterol increased [Unknown]
